FAERS Safety Report 6551359-0 (Version None)
Quarter: 2010Q1

REPORT INFORMATION
  Report Type: 
  Country: None (occurrence: None)
  Receive Date: 20100126
  Receipt Date: 20100120
  Transmission Date: 20100710
  Serious: Yes (Hospitalization, Other)
  Sender: FDA-Public Use
  Company Number: DE-WYE-G05148809

PATIENT
  Age: 73 Year
  Sex: Female

DRUGS (2)
  1. TREVILOR [Suspect]
     Indication: DEPRESSION
     Dosage: 150 MG PER DAY FROM AN UNKNOWN DATE UNTIL DEC-2009
     Route: 048
  2. LYRICA [Interacting]
     Indication: DEPRESSION
     Dosage: 100 MG 4 TIMES PER DAY FROM AN UNKNOWN DATE, REDUCED TO 50 MG 4 TIMES PER DAY FROM DEC-2009
     Route: 048

REACTIONS (6)
  - DRUG INTERACTION [None]
  - FALL [None]
  - FATIGUE [None]
  - INTENTIONAL DRUG MISUSE [None]
  - PULMONARY EMBOLISM [None]
  - THROMBOSIS [None]
